FAERS Safety Report 9761660 (Version 1)
Quarter: 2013Q4

REPORT INFORMATION
  Report Type: Spontaneous
  Country: IT (occurrence: IT)
  Receive Date: 20131216
  Receipt Date: 20131216
  Transmission Date: 20140711
  Serious: Yes (Hospitalization)
  Sender: FDA-Public Use
  Company Number: IT-ACTAVIS-2013-22620

PATIENT
  Age: 49 Year
  Sex: Female
  Weight: 82 kg

DRUGS (3)
  1. PACLITAXEL ACTAVIS [Suspect]
     Indication: BREAST CANCER
     Dosage: 150 MG, 1/WEEK
     Route: 042
     Dates: start: 20131023, end: 20131023
  2. PACLITAXEL ACTAVIS [Suspect]
     Dosage: 150 MG, 1/WEEK
     Route: 042
     Dates: start: 201308
  3. HERCEPTIN [Suspect]
     Indication: BREAST CANCER
     Dosage: 160 MG, 1/WEEK
     Route: 042
     Dates: start: 20130823, end: 20131023

REACTIONS (1)
  - Acute respiratory failure [Recovered/Resolved]
